FAERS Safety Report 24148905 (Version 1)
Quarter: 2024Q3

REPORT INFORMATION
  Report Type: Spontaneous
  Country: US (occurrence: US)
  Receive Date: 20240729
  Receipt Date: 20240729
  Transmission Date: 20241016
  Serious: No
  Sender: BIOMARIN
  Company Number: US-BIOMARINAP-US-2024-159385

PATIENT

DRUGS (1)
  1. PALYNZIQ [Suspect]
     Active Substance: PEGVALIASE-PQPZ
     Indication: Phenylketonuria
     Dosage: 10 MILLIGRAM
     Route: 058

REACTIONS (2)
  - Tunnel vision [Unknown]
  - Vision blurred [Unknown]

NARRATIVE: CASE EVENT DATE: 20240717
